FAERS Safety Report 4778023-2 (Version None)
Quarter: 2005Q3

REPORT INFORMATION
  Report Type: 
  Country: None (occurrence: None)
  Receive Date: 20050921
  Receipt Date: 20050906
  Transmission Date: 20060218
  Serious: Yes (Life-Threatening)
  Sender: FDA-Public Use
  Company Number: 2005US001242

PATIENT
  Age: 77 Year
  Sex: Male

DRUGS (2)
  1. ADENOSCAN [Suspect]
     Indication: SCAN MYOCARDIAL PERFUSION
     Dosage: 32.64 MG, TOTAL DOSE, IV NOS
     Route: 042
     Dates: start: 20050813, end: 20050813
  2. PERSANTINE [Suspect]
     Indication: GLOMERULONEPHRITIS PROLIFERATIVE
     Dosage: 360.00 MG, UID/QD, ORAL
     Route: 048

REACTIONS (3)
  - ATRIOVENTRICULAR BLOCK SECOND DEGREE [None]
  - SHOCK [None]
  - STUPOR [None]
